FAERS Safety Report 9970198 (Version 1)
Quarter: 2014Q1

REPORT INFORMATION
  Report Type: Spontaneous
  Country: IN (occurrence: None)
  Receive Date: 20140304
  Receipt Date: 20140304
  Transmission Date: 20141002
  Serious: No
  Sender: FDA-Public Use
  Company Number: 7271405

PATIENT
  Age: 52 Year
  Sex: Female

DRUGS (4)
  1. METFORMIN (METFORMIN)(METFORMIN) [Suspect]
     Indication: PRODUCT USED FOR UNKNOWN INDICATION
     Dosage: FOR LAST 7 YEARS
     Route: 048
  2. LEVOTHYROXINE (LEVOTHYROXINE)(LEVOTHYROXINE SODIUM) [Suspect]
     Dosage: FOR LAST 10 YEARS
     Route: 048
  3. CALCIUM (CALCIUM)(CALCIUM) [Suspect]
     Indication: PRODUCT USED FOR UNKNOWN INDICATION
     Dosage: LAST 5 YEARS
     Route: 048
  4. ATENOLOL (ATENOLOL) (TABLET) (ATENOLOL) [Suspect]
     Indication: HYPERTENSION
     Dosage: FOR LAST 3 WEEKS -
     Route: 048

REACTIONS (3)
  - Jaundice hepatocellular [None]
  - Hypertension [None]
  - Drug interaction [None]
